FAERS Safety Report 16566720 (Version 1)
Quarter: 2019Q3

REPORT INFORMATION
  Report Type: Spontaneous
  Country: US (occurrence: US)
  Receive Date: 20190712
  Receipt Date: 20190712
  Transmission Date: 20191004
  Serious: Yes (Other)
  Sender: FDA-Public Use
  Company Number: US-MYLANLABS-2019M1065228

PATIENT
  Age: 58 Year
  Sex: Male

DRUGS (5)
  1. FLUCONAZOLE. [Suspect]
     Active Substance: FLUCONAZOLE
     Indication: INFECTIVE KERATITIS
     Dosage: CONTINUED AFTER RIBOFLAVIN PHOTODYNAMIC ANTIMICROBIAL THERAPY, ALONGSIDE MOXIFLOXACIN, NATAMYCIN,...
     Route: 065
  2. NATAMYCIN [Suspect]
     Active Substance: NATAMYCIN
     Indication: INFECTIVE KERATITIS
     Dosage: EYE DROPS ADMINISTERED EVERY HOUR; CONTINUED AFTER RIBOFLAVIN PHOTODYNAMIC ANTIMICROBIAL THERAPY,...
     Route: 047
  3. CICLOSPORIN A [Concomitant]
     Active Substance: CYCLOSPORINE
     Indication: INFECTIVE KERATITIS
     Dosage: EYE DROPS ADMINISTERED FOUR TIMES DAILY; CONTINUED AFTER RIBOFLAVIN PHOTODYNAMIC ANTIMICROBIAL TH...
     Route: 047
  4. MOXIFLOXACIN. [Suspect]
     Active Substance: MOXIFLOXACIN
     Indication: INFECTIVE KERATITIS
     Dosage: EYE DROPS ADMINISTERED EVERY 4 HOURS; CONTINUED AFTER RIBOFLAVIN PHOTODYNAMIC ANTIMICROBIAL THERA...
     Route: 047
  5. ATROPINE. [Concomitant]
     Active Substance: ATROPINE
     Indication: INFECTIVE KERATITIS
     Dosage: ADMINISTERED ONCE DAILY; CONTINUED AFTER RIBOFLAVIN PHOTODYNAMIC ANTIMICROBIAL THERAPY, ALONGSIDE...
     Route: 065

REACTIONS (1)
  - Drug ineffective [Unknown]
